FAERS Safety Report 6902134-6 (Version None)
Quarter: 2010Q3

REPORT INFORMATION
  Report Type: 
  Country: None (occurrence: None)
  Receive Date: 20100803
  Receipt Date: 20100730
  Transmission Date: 20110219
  Serious: Yes (Hospitalization)
  Sender: FDA-Public Use
  Company Number: US-GILEAD-2010-0030569

PATIENT
  Sex: Female
  Weight: 75.818 kg

DRUGS (9)
  1. LETAIRIS [Suspect]
     Indication: PULMONARY ARTERIAL HYPERTENSION
     Route: 048
     Dates: start: 20090602
  2. ASPIRIN [Concomitant]
  3. FUROSEMIDE [Concomitant]
  4. AMLODIPINE [Concomitant]
  5. CARVEDILOL [Concomitant]
  6. ISOSORBIDE DN [Concomitant]
  7. PRAVASTATIN [Concomitant]
  8. GLIMEPIRIDE [Concomitant]
  9. KLOR-CON [Concomitant]

REACTIONS (1)
  - INTESTINAL RESECTION [None]
